FAERS Safety Report 8603146-7 (Version None)
Quarter: 2012Q3

REPORT INFORMATION
  Report Type: 
  Country: None (occurrence: None)
  Receive Date: 20120817
  Receipt Date: 20120814
  Transmission Date: 20120928
  Serious: Yes (Other)
  Sender: FDA-Public Use
  Company Number: GXKR2012DE002628

PATIENT
  Sex: Male

DRUGS (4)
  1. BISOPROLOL FUMARATE [Suspect]
     Dosage: 2.5 MG, QD
     Route: 048
  2. MARCUMAR [Concomitant]
     Route: 048
  3. RAMIPRIL [Concomitant]
     Route: 048
  4. SIMVASTATIN [Concomitant]
     Route: 048

REACTIONS (2)
  - PULMONARY FIBROSIS [None]
  - COUGH [None]
